FAERS Safety Report 7527469-8 (Version None)
Quarter: 2011Q2

REPORT INFORMATION
  Report Type: 
  Country: None (occurrence: None)
  Receive Date: 20110512
  Receipt Date: 20110325
  Transmission Date: 20111010
  Serious: Yes (Hospitalization)
  Sender: FDA-Public Use
  Company Number: 1000019111

PATIENT
  Age: 52 Year
  Sex: Female

DRUGS (8)
  1. NORCO (HYDROCODONE, ACETAMINOPHEN) (HYDROCODONE, ACETAMINOPHEN) [Concomitant]
  2. CYMBALTA [Suspect]
     Dosage: 60 MG (60 MG), ORAL
     Route: 048
     Dates: start: 20090901, end: 20110202
  3. SAVELLA [Suspect]
     Indication: FIBROMYALGIA
     Dosage: 12.5 MG (12.5 MG, 1 IN 1 D), ORAL 25 MG (12.5 MG, 2 IN 1 D), ORAL 50 MG (25MG, 2 IN 1 D), ORAL
     Route: 048
     Dates: start: 20110202, end: 20110202
  4. SAVELLA [Suspect]
     Indication: FIBROMYALGIA
     Dosage: 12.5 MG (12.5 MG, 1 IN 1 D), ORAL 25 MG (12.5 MG, 2 IN 1 D), ORAL 50 MG (25MG, 2 IN 1 D), ORAL
     Route: 048
     Dates: start: 20110205, end: 20110208
  5. SAVELLA [Suspect]
     Indication: FIBROMYALGIA
     Dosage: 12.5 MG (12.5 MG, 1 IN 1 D), ORAL 25 MG (12.5 MG, 2 IN 1 D), ORAL 50 MG (25MG, 2 IN 1 D), ORAL
     Route: 048
     Dates: start: 20110203, end: 20110204
  6. DILANTIN (PHYENYTOIN) (TABLETS0 (PHYENYTOIN) [Concomitant]
  7. SAVELLA [Suspect]
     Indication: FIBROMYALGIA
     Dosage: 100 MG (50 MG, 2 IN 1 D), ORAL
     Route: 048
     Dates: start: 20110209, end: 20110228
  8. PHENTERMINE (PHENTERMINE) (TABLETS) (PHENTERMINE) [Concomitant]

REACTIONS (1)
  - GRAND MAL CONVULSION [None]
